FAERS Safety Report 13876945 (Version 1)
Quarter: 2017Q3

REPORT INFORMATION
  Report Type: Spontaneous
  Country: RU (occurrence: RU)
  Receive Date: 20170817
  Receipt Date: 20170817
  Transmission Date: 20171127
  Serious: Yes (Hospitalization)
  Sender: FDA-Public Use
  Company Number: RU-ASTRAZENECA-2017SE82733

PATIENT
  Age: 63 Year
  Sex: Female
  Weight: 115 kg

DRUGS (3)
  1. FORXIGA [Suspect]
     Active Substance: DAPAGLIFLOZIN
     Indication: TYPE 2 DIABETES MELLITUS
     Route: 048
     Dates: start: 201608
  2. DIABETON [Concomitant]
     Active Substance: GLICLAZIDE
  3. SIOFOR [Concomitant]
     Active Substance: METFORMIN HYDROCHLORIDE

REACTIONS (3)
  - Umbilical hernia [Unknown]
  - Pollakiuria [Recovered/Resolved]
  - Hyperglycaemia [Not Recovered/Not Resolved]
